FAERS Safety Report 8958140 (Version 1)
Quarter: 2012Q4

REPORT INFORMATION
  Report Type: 
  Country: BR (occurrence: BR)
  Receive Date: 20121211
  Receipt Date: 20121211
  Transmission Date: 20130627
  Serious: Yes (Other)
  Sender: FDA-Public Use
  Company Number: BR-AMGEN-BRASP2012078774

PATIENT
  Age: 48 Year
  Sex: Female
  Weight: 67 kg

DRUGS (1)
  1. ENBREL [Suspect]
     Indication: RHEUMATOID ARTHRITIS
     Dosage: 50 mg, once weekly
     Route: 058
     Dates: start: 20090303, end: 201111

REACTIONS (2)
  - Kidney infection [Unknown]
  - Bone loss [Unknown]
